FAERS Safety Report 15924363 (Version 3)
Quarter: 2019Q2

REPORT INFORMATION
  Report Type: Spontaneous
  Country: US (occurrence: US)
  Receive Date: 20190206
  Receipt Date: 20190415
  Transmission Date: 20190711
  Serious: Yes (Death, Congenital Anomaly, Other)
  Sender: FDA-Public Use
  Company Number: US-ASTRAZENECA-2018SF25839

PATIENT
  Sex: Female
  Weight: 63.5 kg

DRUGS (17)
  1. VIMOVO [Suspect]
     Active Substance: ESOMEPRAZOLE MAGNESIUM\NAPROXEN
     Route: 048
     Dates: start: 2000
  2. ACIPHEX [Suspect]
     Active Substance: RABEPRAZOLE SODIUM
     Route: 065
     Dates: start: 2000
  3. SENSIPAR [Concomitant]
     Active Substance: CINACALCET HYDROCHLORIDE
     Route: 065
     Dates: start: 20020802
  4. PRILOSEC [Suspect]
     Active Substance: OMEPRAZOLE MAGNESIUM
     Route: 048
     Dates: start: 20020109, end: 20020730
  5. ULTRAM [Concomitant]
     Active Substance: TRAMADOL HYDROCHLORIDE
     Route: 065
     Dates: start: 20020119
  6. GLUCOTROL [Concomitant]
     Active Substance: GLIPIZIDE
     Route: 065
     Dates: start: 20020802
  7. CIMETIDINE [Concomitant]
     Active Substance: CIMETIDINE
     Route: 065
     Dates: start: 20020802
  8. CIMETIDINE [Concomitant]
     Active Substance: CIMETIDINE
     Route: 065
     Dates: start: 20020802
  9. PRILOSEC [Suspect]
     Active Substance: OMEPRAZOLE MAGNESIUM
     Route: 048
     Dates: start: 2000
  10. PRILOSEC [Suspect]
     Active Substance: OMEPRAZOLE MAGNESIUM
     Route: 048
     Dates: start: 20020119
  11. HYDROCHLOROTHIAZID [Concomitant]
     Active Substance: HYDROCHLOROTHIAZIDE
     Route: 065
     Dates: start: 20011221
  12. AVANDIA [Concomitant]
     Active Substance: ROSIGLITAZONE MALEATE
     Route: 065
     Dates: start: 20020103
  13. TEMAZEPAM. [Concomitant]
     Active Substance: TEMAZEPAM
     Route: 065
     Dates: start: 20020802
  14. ZITHROMAX [Concomitant]
     Active Substance: AZITHROMYCIN DIHYDRATE
     Route: 065
     Dates: start: 20020802
  15. ADALAT [Concomitant]
     Active Substance: NIFEDIPINE
     Route: 065
     Dates: start: 20011221
  16. DIAZEPAM. [Concomitant]
     Active Substance: DIAZEPAM
     Route: 065
     Dates: start: 20020103
  17. LANTUS [Concomitant]
     Active Substance: INSULIN GLARGINE
     Route: 065
     Dates: start: 20020802

REACTIONS (4)
  - End stage renal disease [Fatal]
  - Right ventricular failure [Fatal]
  - Renal failure [Unknown]
  - Chronic kidney disease [Unknown]
